FAERS Safety Report 5814816-8 (Version None)
Quarter: 2008Q3

REPORT INFORMATION
  Report Type: 
  Country: None (occurrence: None)
  Receive Date: 20080718
  Receipt Date: 20080707
  Transmission Date: 20090109
  Serious: Yes (Hospitalization)
  Sender: FDA-Public Use
  Company Number: US-JNJFOC-20080701877

PATIENT
  Sex: Female
  Weight: 104.33 kg

DRUGS (17)
  1. FENTANYL TRANSDERMAL SYSTEM [Suspect]
     Route: 062
  2. FENTANYL TRANSDERMAL SYSTEM [Suspect]
     Indication: PAIN
     Route: 062
  3. MELOXICAM [Concomitant]
     Indication: MUSCLE SPASMS
     Route: 048
  4. CYMBALTA [Concomitant]
     Indication: PAIN
     Route: 048
  5. CYMBALTA [Concomitant]
     Indication: DEPRESSION
     Route: 048
  6. CARISOPRODOL [Concomitant]
     Route: 048
  7. PREVACID [Concomitant]
     Route: 048
  8. ALPRAZOLAM [Concomitant]
     Indication: NERVOUSNESS
     Route: 048
  9. ALPRAZOLAM [Concomitant]
     Indication: DEPRESSION
     Route: 048
  10. LEXAPRO [Concomitant]
     Indication: NERVOUSNESS
     Route: 048
  11. LEXAPRO [Concomitant]
     Indication: DEPRESSION
     Route: 048
  12. KLOR-CON [Concomitant]
     Indication: ELECTROLYTE SUBSTITUTION THERAPY
     Dosage: IN THE MORNING
     Route: 048
  13. FUROSEMIDE [Concomitant]
     Indication: FLUID RETENTION
     Dosage: ONE TABLET ON MONDAY'S, WEDNESDAY'S AND FRIDAY'S
     Route: 048
  14. GABAPENTIN [Concomitant]
     Route: 048
  15. DIOVAN HCT [Concomitant]
     Indication: HYPERTENSION
     Dosage: 80 / 12.5 MG TABLETS IN THE MORNING
     Route: 048
  16. ESTRADIOL [Concomitant]
     Indication: HOT FLUSH
     Dosage: ONE TABLET ON MONDAY'S AND FRIDAY'S
     Route: 048
  17. HYDROCODONE BITARTRATE [Concomitant]
     Indication: PAIN
     Dosage: 7.5/750 MG EVERY 4-6 HOURS AS NEEDED
     Route: 048

REACTIONS (5)
  - ABDOMINAL PAIN [None]
  - HYPOTENSION [None]
  - TREATMENT NONCOMPLIANCE [None]
  - URINARY RETENTION [None]
  - WITHDRAWAL SYNDROME [None]
